FAERS Safety Report 8845072 (Version 2)
Quarter: 2013Q3

REPORT INFORMATION
  Report Type: Spontaneous
  Country: US (occurrence: None)
  Receive Date: 20120925
  Receipt Date: 20130705
  Transmission Date: 20140515
  Serious: Yes (Hospitalization)
  Sender: FDA-Public Use
  Company Number: RB-32739-2011

PATIENT
  Age: 55 Year
  Sex: Female
  Weight: 90.72 kg

DRUGS (3)
  1. SUBOXONE [Suspect]
     Indication: DRUG DEPENDENCE
     Dosage: SUBOXONE FILM SUBLINGUAL
     Route: 060
     Dates: start: 2010, end: 201002
  2. DOXEPIN [Concomitant]
  3. COUMADIN [Concomitant]

REACTIONS (7)
  - Underdose [None]
  - Asthenia [None]
  - Pain in extremity [None]
  - Insomnia [None]
  - Drug dependence [None]
  - Drug withdrawal syndrome [None]
  - Chills [None]
